FAERS Safety Report 25102976 (Version 1)
Quarter: 2025Q1

REPORT INFORMATION
  Report Type: Spontaneous
  Country: US (occurrence: US)
  Receive Date: 20250321
  Receipt Date: 20250321
  Transmission Date: 20250408
  Serious: No
  Sender: ROCHE
  Company Number: US-ROCHE-10000228490

PATIENT
  Age: 28 Year
  Sex: Female
  Weight: 75.3 kg

DRUGS (6)
  1. OCREVUS [Suspect]
     Active Substance: OCRELIZUMAB
     Indication: Multiple sclerosis
     Route: 042
  2. TORADOL [Suspect]
     Active Substance: KETOROLAC TROMETHAMINE
     Indication: Product used for unknown indication
     Route: 065
  3. PRAMIPEXOLE DIHYDROCHLORIDE [Concomitant]
     Active Substance: PRAMIPEXOLE DIHYDROCHLORIDE
     Route: 048
  4. ACETAMINOPHEN\BUTALBITAL\CAFFEINE [Concomitant]
     Active Substance: ACETAMINOPHEN\BUTALBITAL\CAFFEINE
     Route: 048
  5. METHYLPREDNISOLONE SODIUM SUCCINATE [Concomitant]
     Active Substance: METHYLPREDNISOLONE SODIUM SUCCINATE
     Route: 042
  6. LORAZEPAM [Concomitant]
     Active Substance: LORAZEPAM

REACTIONS (13)
  - Fatigue [Unknown]
  - Pain [Unknown]
  - Dysuria [Unknown]
  - Visual impairment [Unknown]
  - Asthenia [Unknown]
  - Migraine [Unknown]
  - Dysphagia [Unknown]
  - Limb discomfort [Unknown]
  - Fall [Unknown]
  - Hypoaesthesia [Unknown]
  - Maternal exposure before pregnancy [Unknown]
  - Nausea [Unknown]
  - Paraesthesia [Unknown]
